FAERS Safety Report 21583813 (Version 1)
Quarter: 2022Q4

REPORT INFORMATION
  Report Type: Report from Study
  Country: TH (occurrence: None)
  Receive Date: 20221111
  Receipt Date: 20221111
  Transmission Date: 20230113
  Serious: Yes (Other)
  Sender: FDA-Public Use
  Company Number: 2022A368145

PATIENT
  Age: 930 Month
  Sex: Female

DRUGS (2)
  1. LYNPARZA [Suspect]
     Active Substance: OLAPARIB
     Indication: BRCA1 gene mutation
     Dosage: 50.0MG UNKNOWN
     Route: 048
     Dates: start: 20210426, end: 20220318
  2. LYNPARZA [Suspect]
     Active Substance: OLAPARIB
     Indication: Neoplasm malignant
     Dosage: 2X2 PC
     Route: 048
     Dates: start: 20220318, end: 202208

REACTIONS (3)
  - Abdominal pain [Unknown]
  - Nausea [Unknown]
  - Vomiting [Unknown]

NARRATIVE: CASE EVENT DATE: 20220701
